FAERS Safety Report 4641549-6 (Version None)
Quarter: 2005Q2

REPORT INFORMATION
  Report Type: 
  Country: None (occurrence: None)
  Receive Date: 20050421
  Receipt Date: 20050311
  Transmission Date: 20051028
  Serious: Yes (Other)
  Sender: FDA-Public Use
  Company Number: DE-AMGEN-UK120650

PATIENT
  Sex: Female
  Weight: 74.5 kg

DRUGS (9)
  1. MIMPARA [Suspect]
     Indication: HYPERPARATHYROIDISM SECONDARY
     Route: 048
     Dates: start: 20050203, end: 20050308
  2. CALCIUM CARBONATE [Concomitant]
     Route: 048
     Dates: start: 20050210
  3. ANTI-PHOSPHAT [Concomitant]
     Route: 048
     Dates: start: 20040306
  4. RENAGEL [Concomitant]
     Route: 048
     Dates: start: 20040406, end: 20050210
  5. BISOPROLOL FUMARATE [Concomitant]
     Route: 048
     Dates: start: 20040311
  6. DIOVAN [Concomitant]
     Route: 048
     Dates: start: 20041228
  7. SIMVASTATIN [Concomitant]
     Route: 048
     Dates: start: 20041228
  8. EPOGEN [Concomitant]
     Route: 042
     Dates: start: 20041218
  9. BELLADONNA EXTRACT [Concomitant]
     Dates: start: 20050101

REACTIONS (3)
  - BLOOD CALCIUM DECREASED [None]
  - ECZEMA [None]
  - OEDEMA PERIPHERAL [None]
